FAERS Safety Report 6913085-5 (Version None)
Quarter: 2010Q3

REPORT INFORMATION
  Report Type: 
  Country: None (occurrence: None)
  Receive Date: 20100806
  Receipt Date: 20090715
  Transmission Date: 20110219
  Serious: No
  Sender: FDA-Public Use
  Company Number: US-PFIZER INC-2009222917

PATIENT
  Sex: Female
  Weight: 125 kg

DRUGS (12)
  1. DETROL LA [Suspect]
     Indication: MICTURITION URGENCY
     Dosage: 4 MG, 1X/DAY
     Route: 048
     Dates: start: 20090526
  2. HUMALOG [Concomitant]
     Dosage: UNK
  3. LANTUS [Concomitant]
     Dosage: UNK
  4. CLONAZEPAM [Concomitant]
     Dosage: UNK
     Route: 048
  5. FOLIC ACID [Concomitant]
     Dosage: UNK
     Route: 048
  6. POTASSIUM CHLORIDE [Concomitant]
     Dosage: UNK
     Route: 048
  7. NORCO [Concomitant]
     Dosage: UNK
     Route: 048
  8. LEVOTHYROXINE SODIUM [Concomitant]
     Dosage: UNK
     Route: 048
  9. LEXAPRO [Concomitant]
     Dosage: UNK
     Route: 048
  10. METOLAZONE [Concomitant]
     Dosage: UNK
     Route: 048
  11. ZOCOR [Concomitant]
     Dosage: UNK
     Route: 048
  12. ACIPHEX [Concomitant]
     Dosage: UNK
     Route: 048

REACTIONS (3)
  - HEADACHE [None]
  - HYPERAESTHESIA [None]
  - SKIN BURNING SENSATION [None]
